FAERS Safety Report 6886910-4 (Version None)
Quarter: 2010Q3

REPORT INFORMATION
  Report Type: 
  Country: None (occurrence: None)
  Receive Date: 20100730
  Receipt Date: 20100719
  Transmission Date: 20110219
  Serious: Yes (Hospitalization)
  Sender: FDA-Public Use
  Company Number: DE-CELGENEUS-062-50794-10071579

PATIENT
  Age: 69 Year
  Sex: Male
  Weight: 70.9 kg

DRUGS (3)
  1. VIDAZA [Suspect]
     Route: 051
     Dates: start: 20100716, end: 20100721
  2. CEFTRIAXONE [Concomitant]
     Route: 051
     Dates: start: 20100716
  3. CIPROFLOXACIN [Concomitant]
     Indication: INFECTION
     Route: 048
     Dates: start: 20100716

REACTIONS (1)
  - MYOCARDIAL INFARCTION [None]
